FAERS Safety Report 18714137 (Version 2)
Quarter: 2021Q1

REPORT INFORMATION
  Report Type: Spontaneous
  Country: US (occurrence: US)
  Receive Date: 20210107
  Receipt Date: 20210318
  Transmission Date: 20210419
  Serious: No
  Sender: FDA-Public Use
  Company Number: US-PFIZER INC-2020476054

PATIENT
  Age: 26 Year
  Sex: Male

DRUGS (2)
  1. STELARA [Concomitant]
     Active Substance: USTEKINUMAB
     Dosage: UNK
  2. XELJANZ [Suspect]
     Active Substance: TOFACITINIB CITRATE
     Indication: COLITIS ULCERATIVE
     Dosage: 10 MG, 2X/DAY
     Route: 048
     Dates: start: 202009

REACTIONS (1)
  - Therapeutic product effect incomplete [Unknown]
